FAERS Safety Report 20857928 (Version 1)
Quarter: 2022Q2

REPORT INFORMATION
  Report Type: Other
  Country: US (occurrence: None)
  Receive Date: 20220521
  Receipt Date: 20220521
  Transmission Date: 20220720
  Serious: Yes (Death)
  Sender: FDA-Public Use
  Company Number: US-ROCHE-3100147

PATIENT
  Sex: Female

DRUGS (1)
  1. OCREVUS [Suspect]
     Active Substance: OCRELIZUMAB
     Indication: Multiple sclerosis
     Dosage: DATE OF LAST TREATMENT WAS 18/NOV/2021
     Route: 065
     Dates: start: 20180516, end: 20211118

REACTIONS (1)
  - COVID-19 pneumonia [Fatal]
